FAERS Safety Report 4560185-3 (Version None)
Quarter: 2005Q1

REPORT INFORMATION
  Report Type: 
  Country: None (occurrence: None)
  Receive Date: 20050120
  Receipt Date: 20050120
  Transmission Date: 20050727
  Serious: No
  Sender: FDA-Public Use
  Company Number: None

PATIENT
  Age: 71 Year
  Sex: Male

DRUGS (2)
  1. COMBIVENT [Suspect]
     Indication: ASTHMA
     Dosage: 2 PUFFF QID
  2. COMBIVENT [Suspect]
     Indication: DYSPNOEA
     Dosage: 2 PUFFF QID

REACTIONS (2)
  - RASH GENERALISED [None]
  - URTICARIA [None]
